FAERS Safety Report 4691313-7 (Version None)
Quarter: 2005Q2

REPORT INFORMATION
  Report Type: 
  Country: None (occurrence: None)
  Receive Date: 20050615
  Receipt Date: 20050607
  Transmission Date: 20051028
  Serious: Yes (Other)
  Sender: FDA-Public Use
  Company Number: GB-MERCK-0506USA01039

PATIENT
  Sex: Female
  Weight: 46 kg

DRUGS (7)
  1. PRINIVIL [Suspect]
     Indication: HYPERTENSION
     Route: 048
     Dates: start: 20050324, end: 20050324
  2. PRINIVIL [Suspect]
     Route: 048
     Dates: start: 20050101
  3. PRINIVIL [Suspect]
     Indication: CONGENITAL CYSTIC KIDNEY DISEASE
     Route: 048
     Dates: start: 20050324, end: 20050324
  4. PRINIVIL [Suspect]
     Route: 048
     Dates: start: 20050101
  5. MICRONOR [Concomitant]
     Indication: CONTRACEPTION
     Route: 048
     Dates: start: 20041229
  6. ALBUTEROL SULFATE [Concomitant]
     Indication: ASTHMA
     Route: 055
  7. FLUNASE (FLUTICASONE PROPIONATE) [Concomitant]
     Indication: ASTHMA
     Route: 055

REACTIONS (3)
  - DIZZINESS [None]
  - GRAND MAL CONVULSION [None]
  - PALPITATIONS [None]
